FAERS Safety Report 11082020 (Version 1)
Quarter: 2015Q2

REPORT INFORMATION
  Report Type: Spontaneous
  Country: CH (occurrence: None)
  Receive Date: 20150429
  Receipt Date: 20150429
  Transmission Date: 20150821
  Serious: Yes (Hospitalization)
  Sender: FDA-Public Use
  Company Number: NSR_02056_2015

PATIENT
  Age: 58 Year
  Sex: Male

DRUGS (13)
  1. ESCITALOPRAM [Suspect]
     Active Substance: ESCITALOPRAM OXALATE
     Indication: DEPRESSION
  2. ATORVASTATIN [Concomitant]
     Active Substance: ATORVASTATIN
  3. TRAMADOL [Suspect]
     Active Substance: TRAMADOL
     Indication: BACK PAIN
     Dosage: (DF)
  4. OXAZEPAM. [Concomitant]
     Active Substance: OXAZEPAM
  5. METFORMIN [Concomitant]
     Active Substance: METFORMIN HYDROCHLORIDE
  6. TROSPIUM [Concomitant]
     Active Substance: TROSPIUM
  7. QUETIAPINE [Concomitant]
     Active Substance: QUETIAPINE
  8. ALPRAZOLAM. [Concomitant]
     Active Substance: ALPRAZOLAM
  9. ZOLPIDEM [Concomitant]
     Active Substance: ZOLPIDEM\ZOLPIDEM TARTRATE
  10. ALFUZOSIN [Concomitant]
     Active Substance: ALFUZOSIN
  11. IBUPROFEN. [Concomitant]
     Active Substance: IBUPROFEN
  12. TRIAMCINOLONE [Concomitant]
     Active Substance: TRIAMCINOLONE
  13. ACETAMINOPHEN. [Concomitant]
     Active Substance: ACETAMINOPHEN

REACTIONS (11)
  - Serotonin syndrome [None]
  - Psychomotor hyperactivity [None]
  - Theft [None]
  - Substance use [None]
  - Family stress [None]
  - Alcohol use [None]
  - Irritability [None]
  - Mania [None]
  - Disinhibition [None]
  - Psychotic disorder [None]
  - Aggression [None]
